FAERS Safety Report 12661062 (Version 1)
Quarter: 2016Q3

REPORT INFORMATION
  Report Type: Spontaneous
  Country: BR (occurrence: BR)
  Receive Date: 20160817
  Receipt Date: 20160817
  Transmission Date: 20161109
  Serious: Yes (Hospitalization)
  Sender: FDA-Public Use
  Company Number: BR-ASTRAZENECA-2016SE87147

PATIENT
  Age: 4 Month
  Sex: Female

DRUGS (2)
  1. MEROPENEM. [Suspect]
     Active Substance: MEROPENEM
     Route: 042
  2. VANCOMYCIN [Concomitant]
     Active Substance: VANCOMYCIN

REACTIONS (4)
  - Pyoderma gangrenosum [Recovered/Resolved with Sequelae]
  - Chronic papillomatous dermatitis [Recovered/Resolved with Sequelae]
  - Drug ineffective [Recovered/Resolved]
  - Scar [Not Recovered/Not Resolved]
